FAERS Safety Report 16064337 (Version 1)
Quarter: 2019Q1

REPORT INFORMATION
  Report Type: Spontaneous
  Country: US (occurrence: US)
  Receive Date: 20190312
  Receipt Date: 20190312
  Transmission Date: 20190418
  Serious: Yes (Hospitalization)
  Sender: FDA-Public Use
  Company Number: US-THERAPEUTICSMD-2019TMD00227

PATIENT
  Sex: Female
  Weight: 65.76 kg

DRUGS (3)
  1. OXYCONTIN [Concomitant]
     Active Substance: OXYCODONE HYDROCHLORIDE
  2. IMVEXXY [Suspect]
     Active Substance: ESTRADIOL
     Indication: VULVOVAGINAL DRYNESS
     Dosage: 10 ?G, 2X/WEEK
     Route: 067
     Dates: start: 2018, end: 201812
  3. IMVEXXY [Suspect]
     Active Substance: ESTRADIOL
     Indication: VULVOVAGINAL MYCOTIC INFECTION
     Dosage: 10 ?G, 2X/WEEK
     Route: 067
     Dates: start: 201812

REACTIONS (7)
  - Fall [Unknown]
  - Vaginal discharge [Unknown]
  - Off label use [Unknown]
  - Loss of consciousness [Unknown]
  - Vulvovaginal mycotic infection [Recovered/Resolved]
  - Concussion [Unknown]
  - Cystitis [Recovered/Resolved]

NARRATIVE: CASE EVENT DATE: 2018
